FAERS Safety Report 8896196 (Version 3)
Quarter: 2013Q3

REPORT INFORMATION
  Report Type: Report from Study
  Country: US (occurrence: US)
  Receive Date: 20121108
  Receipt Date: 20130814
  Transmission Date: 20140515
  Serious: Yes (Hospitalization)
  Sender: FDA-Public Use
  Company Number: PHEH2012US021082

PATIENT
  Age: 34 Year
  Sex: Female
  Weight: 81.2 kg

DRUGS (4)
  1. GILENYA [Suspect]
     Indication: MULTIPLE SCLEROSIS
     Dosage: 0.5 MG, DAILY
     Route: 048
     Dates: start: 20120829, end: 20121026
  2. ORAL CONTRACEPTIVE NOS [Concomitant]
  3. MVI [Concomitant]
     Dosage: 1 DF, QD
     Route: 048
  4. LOESTRIN-FE [Concomitant]
     Dosage: 1 DF, QD
     Route: 048

REACTIONS (2)
  - Ovarian cyst [Not Recovered/Not Resolved]
  - Exposure during pregnancy [Not Recovered/Not Resolved]
